FAERS Safety Report 8127482-6 (Version None)
Quarter: 2012Q1

REPORT INFORMATION
  Report Type: 
  Country: None (occurrence: None)
  Receive Date: 20120210
  Receipt Date: 20120201
  Transmission Date: 20120608
  Serious: Yes (Hospitalization)
  Sender: FDA-Public Use
  Company Number: CH-SANOFI-AVENTIS-2012SA006638

PATIENT
  Age: 76 Year
  Sex: Female

DRUGS (1)
  1. FEXOFENADINE HCL [Suspect]
     Indication: ANGIOEDEMA
     Route: 048
     Dates: start: 20100301, end: 20120127

REACTIONS (2)
  - TRANSIENT ISCHAEMIC ATTACK [None]
  - SYNCOPE [None]
